FAERS Safety Report 17325007 (Version 13)
Quarter: 2021Q1

REPORT INFORMATION
  Report Type: Other
  Country: CA (occurrence: CA)
  Receive Date: 20200127
  Receipt Date: 20210315
  Transmission Date: 20210419
  Serious: Yes (Hospitalization, Other)
  Sender: FDA-Public Use
  Company Number: CA-ROCHE-2259851

PATIENT
  Age: 41 Year
  Sex: Female

DRUGS (17)
  1. OCREVUS [Suspect]
     Active Substance: OCRELIZUMAB
     Route: 042
     Dates: start: 20190828
  2. ADVIL [Concomitant]
     Active Substance: IBUPROFEN
  3. VITAMIN B12 [Concomitant]
     Active Substance: CYANOCOBALAMIN
     Indication: PRODUCT USED FOR UNKNOWN INDICATION
  4. CARBAMAZEPINE. [Concomitant]
     Active Substance: CARBAMAZEPINE
     Dates: start: 201812
  5. LYRICA [Concomitant]
     Active Substance: PREGABALIN
     Indication: NECK PAIN
  6. ZOPLICONE [Concomitant]
     Active Substance: ZOPICLONE
  7. BENADRYL [Concomitant]
     Active Substance: DIPHENHYDRAMINE HYDROCHLORIDE
  8. SENNA [Concomitant]
     Active Substance: SENNA LEAF\SENNOSIDES\SENNOSIDES A AND B
     Dosage: 8.6, FOR BOWEL MOVEMENT
  9. TRAZODONE [Concomitant]
     Active Substance: TRAZODONE HYDROCHLORIDE
  10. ADVAIR HFA [Concomitant]
     Active Substance: FLUTICASONE PROPIONATE\SALMETEROL XINAFOATE
  11. APO?FENO [Concomitant]
     Active Substance: FENOFIBRATE
     Indication: PRODUCT USED FOR UNKNOWN INDICATION
  12. REPAGLINIDE. [Concomitant]
     Active Substance: REPAGLINIDE
     Indication: DIABETES MELLITUS
  13. ESOMEPRAZOLE. [Concomitant]
     Active Substance: ESOMEPRAZOLE MAGNESIUM
     Indication: GASTROOESOPHAGEAL REFLUX DISEASE
  14. DOCUSATE [Concomitant]
     Active Substance: DOCUSATE
     Dosage: INDICATION: FOR BOWEL MOVEMENT
  15. OCREVUS [Suspect]
     Active Substance: OCRELIZUMAB
     Indication: RELAPSING-REMITTING MULTIPLE SCLEROSIS
     Dosage: AT DAY 0 AND 14, THEN 600 MG EVERY 6 MONTHS
     Route: 042
     Dates: start: 20190201
  16. METFORMIN [Suspect]
     Active Substance: METFORMIN HYDROCHLORIDE
     Indication: DIABETES MELLITUS
     Route: 065
     Dates: start: 201910
  17. OCREVUS [Suspect]
     Active Substance: OCRELIZUMAB
     Route: 042
     Dates: start: 20190215

REACTIONS (54)
  - Urinary tract disorder [Unknown]
  - Pleural effusion [Recovered/Resolved]
  - Polymenorrhoea [Unknown]
  - Gingival pain [Unknown]
  - Hyperaesthesia teeth [Not Recovered/Not Resolved]
  - Limb discomfort [Unknown]
  - Diarrhoea [Unknown]
  - Back pain [Not Recovered/Not Resolved]
  - Gait disturbance [Not Recovered/Not Resolved]
  - Emphysema [Not Recovered/Not Resolved]
  - Muscular weakness [Unknown]
  - Hypoaesthesia [Unknown]
  - Fatigue [Unknown]
  - Cardiac disorder [Unknown]
  - Stress [Not Recovered/Not Resolved]
  - Migraine [Not Recovered/Not Resolved]
  - Nasal congestion [Recovering/Resolving]
  - Infusion related reaction [Not Recovered/Not Resolved]
  - Dysphonia [Unknown]
  - Vomiting [Unknown]
  - Cough [Not Recovered/Not Resolved]
  - Fatigue [Unknown]
  - Influenza [Unknown]
  - Pain in extremity [Unknown]
  - Lung disorder [Unknown]
  - Renal pain [Unknown]
  - Pancreatitis [Recovered/Resolved]
  - Diabetes mellitus [Recovering/Resolving]
  - Gingival disorder [Recovered/Resolved]
  - Neck pain [Unknown]
  - Gastrooesophageal reflux disease [Not Recovered/Not Resolved]
  - Malaise [Not Recovered/Not Resolved]
  - Toothache [Unknown]
  - Constipation [Unknown]
  - Asthenia [Not Recovered/Not Resolved]
  - Dermatitis contact [Not Recovered/Not Resolved]
  - Joint warmth [Unknown]
  - Tendonitis [Unknown]
  - Facial neuralgia [Not Recovered/Not Resolved]
  - Nausea [Unknown]
  - Acne [Unknown]
  - Muscular weakness [Unknown]
  - Breast pain [Unknown]
  - Anxiety [Unknown]
  - Vaginal infection [Unknown]
  - Skin laceration [Unknown]
  - Fall [Unknown]
  - Feeling hot [Unknown]
  - Headache [Recovered/Resolved]
  - Regurgitation [Unknown]
  - Arthralgia [Unknown]
  - Abdominal pain upper [Not Recovered/Not Resolved]
  - Abdominal pain [Unknown]
  - Dizziness [Unknown]

NARRATIVE: CASE EVENT DATE: 201902
